FAERS Safety Report 9898752 (Version 1)
Quarter: 2014Q1

REPORT INFORMATION
  Report Type: Report from Study
  Country: US (occurrence: US)
  Receive Date: 20140214
  Receipt Date: 20140214
  Transmission Date: 20141002
  Serious: Yes (Other)
  Sender: FDA-Public Use
  Company Number: US-BAXTER-2014BAX007854

PATIENT
  Sex: 0

DRUGS (5)
  1. IFEX (IFOSFAMIDE FOR INJECTION, USP) [Suspect]
     Indication: SARCOMA
     Dosage: DAYS 1-3 EVERY 21 DAYS FOR 6 CYCLES
     Route: 042
  2. MESNA FOR INJECTION 1 GRAM [Suspect]
     Indication: PRODUCT USED FOR UNKNOWN INDICATION
     Route: 065
  3. EPIRUBICIN [Suspect]
     Indication: SARCOMA
     Dosage: DAYS 1-3 EVERY 21 DAYS
     Route: 042
  4. PEGFILGRASTIM [Suspect]
     Indication: PRODUCT USED FOR UNKNOWN INDICATION
     Route: 065
  5. SORAFENIB [Suspect]
     Indication: SARCOMA
     Route: 048

REACTIONS (2)
  - Rash [Unknown]
  - Palmar-plantar erythrodysaesthesia syndrome [Unknown]
